FAERS Safety Report 5574378-X (Version None)
Quarter: 2007Q4

REPORT INFORMATION
  Report Type: 
  Country: None (occurrence: None)
  Receive Date: 20071227
  Receipt Date: 20071217
  Transmission Date: 20080405
  Serious: Yes (Other)
  Sender: FDA-Public Use
  Company Number: DE-JNJFOC-20071204357

PATIENT
  Sex: Male
  Weight: 110 kg

DRUGS (3)
  1. IMODIUM [Suspect]
     Indication: DIARRHOEA
  2. ALLOPURINOL [Concomitant]
     Indication: GOUT
  3. DICLOFENAC [Concomitant]
     Indication: OSTEOARTHRITIS

REACTIONS (1)
  - LEUKOCYTOCLASTIC VASCULITIS [None]
